FAERS Safety Report 14847395 (Version 1)
Quarter: 2018Q2

REPORT INFORMATION
  Report Type: Spontaneous
  Country: US (occurrence: US)
  Receive Date: 20180504
  Receipt Date: 20180504
  Transmission Date: 20180711
  Serious: Yes (Hospitalization, Disabling, Other)
  Sender: FDA-Public Use
  Company Number: US-PFIZER INC-2018179731

PATIENT
  Age: 38 Year
  Sex: Female

DRUGS (2)
  1. LEVOPHED [Suspect]
     Active Substance: NOREPINEPHRINE BITARTRATE
     Dosage: UNK
  2. HUMIRA [Suspect]
     Active Substance: ADALIMUMAB
     Indication: ANKYLOSING SPONDYLITIS
     Dosage: UNK
     Route: 058

REACTIONS (10)
  - Pneumonia viral [Unknown]
  - Renal failure [Unknown]
  - Nosocomial infection [Unknown]
  - Hepatic failure [Unknown]
  - Sepsis [Unknown]
  - Immunodeficiency [Unknown]
  - Dyspnoea [Unknown]
  - Nasopharyngitis [Unknown]
  - Pneumonia bacterial [Unknown]
  - Poor peripheral circulation [Unknown]
